FAERS Safety Report 7978347-1 (Version None)
Quarter: 2011Q4

REPORT INFORMATION
  Report Type: 
  Country: None (occurrence: None)
  Receive Date: 20111214
  Receipt Date: 20111208
  Transmission Date: 20120403
  Serious: Yes (Other)
  Sender: FDA-Public Use
  Company Number: US-PFIZER INC-2011300214

PATIENT
  Sex: Male
  Weight: 78.912 kg

DRUGS (1)
  1. XALATAN [Suspect]
     Indication: GLAUCOMA
     Dosage: UNK, 1X/DAY
     Dates: start: 20060101

REACTIONS (2)
  - RETINAL OPERATION [None]
  - CATARACT OPERATION [None]
